FAERS Safety Report 9888327 (Version 2)
Quarter: 2014Q2

REPORT INFORMATION
  Report Type: Spontaneous
  Country: US (occurrence: US)
  Receive Date: 20140211
  Receipt Date: 20140408
  Transmission Date: 20141212
  Serious: Yes (Other)
  Sender: FDA-Public Use
  Company Number: US-PFIZER INC-2014035831

PATIENT
  Age: 56 Year
  Sex: Female
  Weight: 89.34 kg

DRUGS (2)
  1. PREMPRO [Suspect]
     Dosage: UNK
  2. LYRICA [Suspect]
     Indication: PAIN
     Dosage: 200 MG, 2X/DAY
     Route: 048

REACTIONS (1)
  - Sinusitis [Not Recovered/Not Resolved]
